FAERS Safety Report 24010544 (Version 1)
Quarter: 2024Q2

REPORT INFORMATION
  Report Type: Spontaneous
  Country: US (occurrence: None)
  Receive Date: 20240624
  Receipt Date: 20240624
  Transmission Date: 20240716
  Serious: Yes (Other)
  Sender: FDA-Public Use
  Company Number: None

PATIENT
  Age: 76 Year
  Sex: Female
  Weight: 84.6 kg

DRUGS (11)
  1. FEBUXOSTAT [Suspect]
     Active Substance: FEBUXOSTAT
     Indication: Gouty tophus
     Dosage: 1 TABLET DAILY ORAL?
     Route: 048
     Dates: start: 20231126, end: 20240622
  2. IRBESARTAN [Concomitant]
     Active Substance: IRBESARTAN
  3. ATENOLOL [Concomitant]
     Active Substance: ATENOLOL
  4. COLCHICINE [Concomitant]
     Active Substance: COLCHICINE
  5. TORSEMIDE [Concomitant]
     Active Substance: TORSEMIDE
  6. KCL [Concomitant]
     Active Substance: POTASSIUM CHLORIDE
  7. ATORVASTATIN [Concomitant]
     Active Substance: ATORVASTATIN
  8. WARFARIN [Concomitant]
     Active Substance: WARFARIN
  9. ESTRADIOL [Concomitant]
     Active Substance: ESTRADIOL
  10. BENADRYL [Concomitant]
     Active Substance: DIPHENHYDRAMINE HYDROCHLORIDE
  11. VITAMINS [Concomitant]
     Active Substance: VITAMINS

REACTIONS (4)
  - Genital blister [None]
  - Contusion [None]
  - Haemorrhage [None]
  - Rash papular [None]

NARRATIVE: CASE EVENT DATE: 20240423
